FAERS Safety Report 8532994-7 (Version None)
Quarter: 2012Q3

REPORT INFORMATION
  Report Type: 
  Country: None (occurrence: None)
  Receive Date: 20120724
  Receipt Date: 20120713
  Transmission Date: 20120928
  Serious: Yes (Hospitalization)
  Sender: FDA-Public Use
  Company Number: US-NOVOPROD-345577

PATIENT
  Age: 58 Year
  Sex: Male
  Weight: 104.4 kg

DRUGS (3)
  1. VICTOZA [Suspect]
     Indication: TYPE 2 DIABETES MELLITUS
     Route: 058
  2. NITROGLYCERIN [Concomitant]
     Route: 042
  3. ZITHROMAX [Concomitant]
     Indication: DYSPNOEA

REACTIONS (1)
  - ANGINA PECTORIS [None]
